FAERS Safety Report 4728135-4 (Version None)
Quarter: 2005Q3

REPORT INFORMATION
  Report Type: 
  Country: None (occurrence: None)
  Receive Date: 20050728
  Receipt Date: 20050728
  Transmission Date: 20060218
  Serious: Yes (Hospitalization)
  Sender: FDA-Public Use
  Company Number: None

PATIENT
  Sex: Male

DRUGS (7)
  1. VYTORIN [Suspect]
     Indication: BLOOD CHOLESTEROL
     Dosage: 10/10  , PO
     Route: 048
     Dates: start: 20050215, end: 20050708
  2. VYTORIN [Suspect]
     Indication: HYPERTENSION
     Dosage: 10/10  , PO
     Route: 048
     Dates: start: 20050215, end: 20050708
  3. LISINOPRIL [Concomitant]
  4. AMARYL [Concomitant]
  5. ALPRAZOLAM [Concomitant]
  6. MOTRIN [Concomitant]
  7. ZYRTEC [Concomitant]

REACTIONS (4)
  - HEADACHE [None]
  - NAUSEA [None]
  - RHABDOMYOLYSIS [None]
  - VOMITING [None]
